FAERS Safety Report 21229929 (Version 2)
Quarter: 2022Q3

REPORT INFORMATION
  Report Type: Spontaneous
  Country: US (occurrence: US)
  Receive Date: 20220818
  Receipt Date: 20220915
  Transmission Date: 20221026
  Serious: No
  Sender: FDA-Public Use
  Company Number: US-SA-SAC20220812000204

PATIENT
  Age: 75 Year
  Sex: Male

DRUGS (1)
  1. DUPIXENT [Suspect]
     Active Substance: DUPILUMAB
     Indication: Dermatitis atopic
     Dosage: 300 MG, QOW
     Route: 058
     Dates: start: 202204

REACTIONS (3)
  - Rash [Not Recovered/Not Resolved]
  - Drug effect less than expected [Unknown]
  - Drug ineffective [Unknown]

NARRATIVE: CASE EVENT DATE: 20220101
